FAERS Safety Report 24443339 (Version 1)
Quarter: 2024Q4

REPORT INFORMATION
  Report Type: Report from Study
  Country: US (occurrence: US)
  Receive Date: 20241016
  Receipt Date: 20241016
  Transmission Date: 20250115
  Serious: Yes (Hospitalization)
  Sender: ABBVIE
  Company Number: US-ABBVIE-5888488

PATIENT
  Sex: Male

DRUGS (1)
  1. VENCLEXTA [Suspect]
     Active Substance: VENETOCLAX
     Indication: Myelodysplastic syndrome
     Dosage: VENDEXTA G6551245 ?FORM STRENGTH: 100 MG?TAKE 2 TABLET(S) BY MOUTH (200MG) DAILY FOR 14 DAYS ON, ...
     Route: 048

REACTIONS (4)
  - Pyrexia [Unknown]
  - Off label use [Unknown]
  - Product communication issue [Unknown]
  - Adverse drug reaction [Unknown]
